FAERS Safety Report 16404081 (Version 1)
Quarter: 2019Q2

REPORT INFORMATION
  Report Type: Spontaneous
  Country: US (occurrence: US)
  Receive Date: 20190607
  Receipt Date: 20190607
  Transmission Date: 20190711
  Serious: No
  Sender: FDA-Public Use
  Company Number: US-ELI_LILLY_AND_COMPANY-US201905016125

PATIENT
  Sex: Female

DRUGS (1)
  1. FORTEO [Suspect]
     Active Substance: TERIPARATIDE
     Indication: OSTEOPOROSIS
     Dosage: UNK UNK, UNKNOWN
     Route: 065
     Dates: start: 20190301

REACTIONS (9)
  - Injection site bruising [Unknown]
  - Back pain [Unknown]
  - Pain [Unknown]
  - Injection site haemorrhage [Unknown]
  - Bone loss [Unknown]
  - Panic attack [Unknown]
  - Blood disorder [Unknown]
  - Drug interaction [Unknown]
  - Injection site pain [Unknown]
